FAERS Safety Report 8496013-3 (Version None)
Quarter: 2012Q3

REPORT INFORMATION
  Report Type: 
  Country: None (occurrence: None)
  Receive Date: 20120709
  Receipt Date: 20120705
  Transmission Date: 20120928
  Serious: Yes (Other)
  Sender: FDA-Public Use
  Company Number: US-PFIZER INC-2010125730

PATIENT
  Sex: Female
  Weight: 58.957 kg

DRUGS (3)
  1. LIPITOR [Suspect]
     Indication: BLOOD CHOLESTEROL INCREASED
  2. LIPITOR [Suspect]
     Indication: HYPERLIPIDAEMIA
     Dosage: 40 MG, DAILY
     Route: 048
  3. METOPROLOL SUCCINATE [Concomitant]
     Indication: EXTRASYSTOLES
     Dosage: UNK, 2X/DAY

REACTIONS (1)
  - DEMENTIA ALZHEIMER'S TYPE [None]
